FAERS Safety Report 9786535 (Version 1)
Quarter: 2013Q4

REPORT INFORMATION
  Report Type: Spontaneous
  Country: AR (occurrence: None)
  Receive Date: 20131224
  Receipt Date: 20131224
  Transmission Date: 20140711
  Serious: Yes (Other)
  Sender: FDA-Public Use
  Company Number: VAL_02872_2013

PATIENT
  Sex: Female

DRUGS (5)
  1. METHYLERGOMETRINE MALEATE [Suspect]
     Indication: VAGINAL HAEMORRHAGE
     Dosage: DF ORAL
     Route: 048
     Dates: start: 2013, end: 2013
  2. METHYLERGOMETRINE MALEATE [Suspect]
     Indication: THROMBOSIS
     Dosage: DF ORAL
     Route: 048
     Dates: start: 2013, end: 2013
  3. METHYLERGOMETRINE MALEATE [Suspect]
     Indication: UTERINE DISORDER
     Dosage: DF ORAL
     Route: 048
     Dates: start: 2013, end: 2013
  4. GLUCOVANCE [Concomitant]
  5. METFORMIN HYDROCHLORIDE [Concomitant]

REACTIONS (3)
  - Vaginal haemorrhage [None]
  - Cardiac disorder [None]
  - Obesity [None]
